FAERS Safety Report 5919032-7 (Version None)
Quarter: 2008Q4

REPORT INFORMATION
  Report Type: 
  Country: None (occurrence: None)
  Receive Date: 20081015
  Receipt Date: 20081009
  Transmission Date: 20090506
  Serious: Yes (Disabling)
  Sender: FDA-Public Use
  Company Number: NO-ASTRAZENECA-2008SE04336

PATIENT
  Age: 73 Year
  Sex: Male

DRUGS (9)
  1. ATACAND [Suspect]
     Indication: HYPERTENSION
     Route: 048
     Dates: start: 20060202, end: 20080828
  2. SIMVASTATIN [Suspect]
     Route: 048
     Dates: start: 20071114
  3. SELO-ZOK [Concomitant]
     Route: 048
     Dates: start: 19991016
  4. ALBYL-E [Concomitant]
     Route: 048
  5. BURINEX [Concomitant]
     Route: 048
     Dates: start: 20070512
  6. AMLODIPINE [Concomitant]
     Route: 048
     Dates: start: 20070512
  7. PLAVIX [Concomitant]
     Route: 048
     Dates: start: 20060311
  8. NEXIUM [Concomitant]
     Route: 048
     Dates: start: 20020101
  9. CARDURAN CR [Concomitant]
     Route: 048
     Dates: start: 20021121

REACTIONS (1)
  - INTERSTITIAL LUNG DISEASE [None]
